FAERS Safety Report 10045943 (Version 2)
Quarter: 2014Q1

REPORT INFORMATION
  Report Type: Spontaneous
  Country: US (occurrence: US)
  Receive Date: 20140330
  Receipt Date: 20140330
  Transmission Date: 20141002
  Serious: Yes (Other)
  Sender: FDA-Public Use
  Company Number: US-GE HEALTHCARE MEDICAL DIAGNOSTICS-OSCN-PR-0712S-0495

PATIENT
  Age: 29 Year
  Sex: Female

DRUGS (9)
  1. OMNISCAN [Suspect]
     Indication: RENAL FAILURE
     Route: 042
     Dates: start: 20021118, end: 20021118
  2. OMNISCAN [Suspect]
     Indication: RENAL ARTERY THROMBOSIS
     Route: 042
     Dates: start: 20021127, end: 20021127
  3. OMNISCAN [Suspect]
     Indication: HAEMORRHAGE
     Route: 042
     Dates: start: 20021208, end: 20021208
  4. OMNISCAN [Suspect]
     Route: 042
     Dates: start: 20030326, end: 20030326
  5. OMNISCAN [Suspect]
     Route: 042
     Dates: start: 20030404, end: 20030404
  6. OMNISCAN [Suspect]
     Route: 042
     Dates: start: 20030616, end: 20030616
  7. OMNISCAN [Suspect]
     Route: 042
     Dates: start: 20021127, end: 20021127
  8. MULTIHANCE [Concomitant]
     Indication: PRODUCT USED FOR UNKNOWN INDICATION
     Dates: start: 20051111, end: 20051111
  9. MAGNEVIST [Concomitant]
     Route: 042
     Dates: start: 20031125, end: 20031125

REACTIONS (1)
  - Nephrogenic systemic fibrosis [Not Recovered/Not Resolved]
